FAERS Safety Report 17989536 (Version 1)
Quarter: 2020Q3

REPORT INFORMATION
  Report Type: Spontaneous
  Country: US (occurrence: US)
  Receive Date: 20200707
  Receipt Date: 20200707
  Transmission Date: 20201103
  Serious: Yes (Other)
  Sender: FDA-Public Use
  Company Number: None

PATIENT
  Age: 73 Year
  Sex: Female
  Weight: 108.8 kg

DRUGS (13)
  1. DILTIAZEM 240MG CD [Concomitant]
     Dates: start: 20200630
  2. HYDROCHLOROTHIAZIDE 12.5 MG [Concomitant]
     Active Substance: HYDROCHLOROTHIAZIDE
     Dates: start: 20200630
  3. FAMOTIDINE 20MG [Concomitant]
     Active Substance: FAMOTIDINE
     Dates: start: 20200702
  4. POTASSIUM [Concomitant]
     Active Substance: POTASSIUM
     Dates: start: 20200630, end: 20200704
  5. RIVAROXABAN 20MG [Concomitant]
     Active Substance: RIVAROXABAN
     Dates: start: 20200630
  6. ATORVASTATIN 10MG [Concomitant]
     Active Substance: ATORVASTATIN
     Dates: start: 20200630
  7. PREDNISONE 40MG [Concomitant]
     Active Substance: PREDNISONE
     Dates: start: 20200703
  8. FLECAINIDE 150MG [Concomitant]
     Dates: start: 20200630
  9. REMDESIVIR. [Suspect]
     Active Substance: REMDESIVIR
     Indication: COVID-19
     Dosage: ?          OTHER FREQUENCY:ONCE;?
     Route: 042
     Dates: start: 20200701, end: 20200701
  10. METOPROLOL 25MG [Concomitant]
     Active Substance: METOPROLOL
     Dates: start: 20200630
  11. OMEPRAZOLE 40MG [Concomitant]
     Active Substance: OMEPRAZOLE
     Dates: start: 20200630, end: 20200702
  12. NYSTATIN 5ML ORAL SUSPENSION [Concomitant]
     Dates: start: 20200703
  13. REMDESIVIR. [Suspect]
     Active Substance: REMDESIVIR
     Indication: COVID-19
     Route: 042
     Dates: start: 20200702, end: 20200703

REACTIONS (8)
  - Abdominal tenderness [None]
  - Nausea [None]
  - Tongue discomfort [None]
  - Oral candidiasis [None]
  - Therapy cessation [None]
  - Oral discomfort [None]
  - Hypophagia [None]
  - Anorectal discomfort [None]

NARRATIVE: CASE EVENT DATE: 20200703
